FAERS Safety Report 7528811 (Version 2)
Quarter: 2020Q3

REPORT INFORMATION
  Report Type: Spontaneous
  Country: None (occurrence: ES)
  Receive Date: 20100727
  Receipt Date: 20200728
  Transmission Date: 20201103
  Serious: Yes (Hospitalization, Other)
  Sender: FDA-Public Use
  Company Number: ES-SANOFI-AVENTIS-2010SA041240

PATIENT

DRUGS (6)
  1. SIMVASTATIN. [Suspect]
     Active Substance: SIMVASTATIN
     Indication: DYSLIPIDAEMIA
     Dosage: 40 MG, QD
     Route: 048
     Dates: start: 201003, end: 20100602
  2. PANTOPRAZOLE [Suspect]
     Active Substance: PANTOPRAZOLE
     Indication: PROPHYLAXIS AGAINST GASTROINTESTINAL ULCER
     Dosage: 40 MG, QD
     Route: 048
     Dates: start: 201003, end: 20100602
  3. PHENYTOIN. [Suspect]
     Active Substance: PHENYTOIN
     Indication: METASTASES TO CENTRAL NERVOUS SYSTEM
     Dosage: || DOSIS UNIDAD FRECUENCIA: 300 MG?MILIGRAMOS || DOSIS POR TOMA: 100 MG?MILIGRAMOS || N? TOMAS POR U
     Route: 048
     Dates: start: 201003, end: 20100602
  4. CLEXANE [Suspect]
     Active Substance: ENOXAPARIN SODIUM
     Indication: THROMBOSIS PROPHYLAXIS
     Dosage: || DOSIS UNIDAD FRECUENCIA: 40 MG?MILIGRAMOS || DOSIS POR TOMA: 40 MG?MILIGRAMOS || N? TOMAS POR UNI
     Route: 058
     Dates: start: 201003, end: 20100602
  5. FORTECORTIN [DEXAMETHASONE] [Suspect]
     Active Substance: DEXAMETHASONE
     Indication: METASTASES TO CENTRAL NERVOUS SYSTEM
     Dosage: || DOSIS UNIDAD FRECUENCIA: 4 MG?MILIGRAMOS, COMPRIMIDO
     Route: 065
     Dates: start: 201003, end: 20100602
  6. LOITIN [Suspect]
     Active Substance: FLUCONAZOLE
     Indication: METASTASES TO CENTRAL NERVOUS SYSTEM
     Dosage: 50 MG, BID
     Route: 048
     Dates: start: 201003, end: 20100602

REACTIONS (1)
  - Toxic epidermal necrolysis [Recovered/Resolved]

NARRATIVE: CASE EVENT DATE: 20100601
